FAERS Safety Report 9913512 (Version 2)
Quarter: 2014Q1

REPORT INFORMATION
  Report Type: Spontaneous
  Country: US (occurrence: None)
  Receive Date: 20140214
  Receipt Date: 20140305
  Transmission Date: 20141002
  Serious: No
  Sender: FDA-Public Use
  Company Number: DSU-2014-00254

PATIENT
  Age: 67 Year
  Sex: Female

DRUGS (3)
  1. BENICAR HCT [Suspect]
     Indication: HYPERTENSION
     Dosage: 40/25MG (QD), PER ORAL
     Route: 048
     Dates: end: 20131224
  2. ATORVASTATIN (ATORVASTATIN) [Concomitant]
  3. GLUCOSAMINE (GLUCOSAMINE) [Concomitant]

REACTIONS (8)
  - Fall [None]
  - Finger amputation [None]
  - Limb injury [None]
  - Sinusitis [None]
  - Drug administration error [None]
  - Economic problem [None]
  - Skin injury [None]
  - Limb injury [None]
